FAERS Safety Report 7650627-9 (Version None)
Quarter: 2011Q3

REPORT INFORMATION
  Report Type: 
  Country: None (occurrence: None)
  Receive Date: 20110802
  Receipt Date: 20110722
  Transmission Date: 20111222
  Serious: Yes (Hospitalization, Other)
  Sender: FDA-Public Use
  Company Number: US-JNJFOC-20110709934

PATIENT
  Age: 7 Decade
  Sex: Female

DRUGS (4)
  1. ASACOL [Concomitant]
  2. REMICADE [Suspect]
     Dosage: 2 TO 3 TOTAL DOSES
     Route: 042
     Dates: end: 20110701
  3. IMURAN [Concomitant]
     Dates: start: 20110301
  4. REMICADE [Suspect]
     Indication: CROHN'S DISEASE
     Route: 042

REACTIONS (2)
  - MENINGITIS CRYPTOCOCCAL [None]
  - INTESTINAL OBSTRUCTION [None]
